FAERS Safety Report 14553827 (Version 2)
Quarter: 2019Q4

REPORT INFORMATION
  Report Type: Report from Study
  Country: US (occurrence: US)
  Receive Date: 20180220
  Receipt Date: 20191216
  Transmission Date: 20200122
  Serious: Yes (Other)
  Sender: FDA-Public Use
  Company Number: US-SA-2018SA037791

PATIENT
  Age: 13 Year
  Sex: Female

DRUGS (1)
  1. IMIGLUCERASE [Suspect]
     Active Substance: IMIGLUCERASE
     Indication: GAUCHER^S DISEASE
     Dosage: 1200.00, Q2
     Route: 041
     Dates: start: 20190811

REACTIONS (2)
  - Suicide attempt [Unknown]
  - Fatigue [Recovered/Resolved]
